FAERS Safety Report 14946176 (Version 14)
Quarter: 2022Q2

REPORT INFORMATION
  Report Type: Report from Study
  Country: FR (occurrence: FR)
  Receive Date: 20180529
  Receipt Date: 20220509
  Transmission Date: 20220720
  Serious: Yes (Hospitalization)
  Sender: FDA-Public Use
  Company Number: PHHO2018FR006559

PATIENT
  Age: 71 Year
  Sex: Female
  Weight: 48 kg

DRUGS (5)
  1. SPARTALIZUMAB [Suspect]
     Active Substance: SPARTALIZUMAB
     Indication: Malignant melanoma
     Dosage: 400 MG, Q4W
     Route: 042
     Dates: start: 20171227
  2. DABRAFENIB [Suspect]
     Active Substance: DABRAFENIB
     Indication: Malignant melanoma
     Dosage: 150 MG, BID
     Route: 048
     Dates: start: 20171227
  3. DABRAFENIB [Suspect]
     Active Substance: DABRAFENIB
     Dosage: 150 MG, BID
     Route: 048
     Dates: start: 20180603
  4. TRAMETINIB [Suspect]
     Active Substance: TRAMETINIB
     Indication: Malignant melanoma
     Dosage: 2 MG, QD
     Route: 048
     Dates: start: 20171227, end: 20180518
  5. TRAMETINIB [Suspect]
     Active Substance: TRAMETINIB
     Dosage: 2 MG, QD
     Route: 048
     Dates: start: 20180603

REACTIONS (1)
  - Pneumonia [Recovered/Resolved]

NARRATIVE: CASE EVENT DATE: 20180514
